FAERS Safety Report 15041524 (Version 1)
Quarter: 2018Q2

REPORT INFORMATION
  Report Type: Spontaneous
  Country: GB (occurrence: GB)
  Receive Date: 20180621
  Receipt Date: 20180621
  Transmission Date: 20180711
  Serious: Yes (Hospitalization)
  Sender: FDA-Public Use
  Company Number: GB-TEVA-2018-GB-909837

PATIENT
  Age: 34 Year
  Sex: Female

DRUGS (3)
  1. FLUOXETINE [Concomitant]
     Active Substance: FLUOXETINE HYDROCHLORIDE
     Route: 065
  2. NITROFURANTOIN. [Suspect]
     Active Substance: NITROFURANTOIN
     Indication: URINARY TRACT INFECTION
     Dosage: 200 MILLIGRAM DAILY;
     Route: 048
     Dates: start: 20180416, end: 20180418
  3. ESTRADIOL HEMIHYDRATE [Concomitant]
     Active Substance: ESTRADIOL HEMIHYDRATE
     Route: 065

REACTIONS (5)
  - Sepsis [Unknown]
  - Pyrexia [Unknown]
  - Rash generalised [Unknown]
  - Confusional state [Unknown]
  - Acute generalised exanthematous pustulosis [Recovering/Resolving]

NARRATIVE: CASE EVENT DATE: 20180417
